FAERS Safety Report 5300420-7 (Version None)
Quarter: 2007Q2

REPORT INFORMATION
  Report Type: 
  Country: None (occurrence: None)
  Receive Date: 20070411
  Receipt Date: 20070326
  Transmission Date: 20071010
  Serious: Yes (Other)
  Sender: FDA-Public Use
  Company Number: 8022959

PATIENT
  Sex: Female

DRUGS (2)
  1. KEPPRA [Suspect]
     Indication: EPILEPSY
     Dosage: 1000 MG/D
     Dates: start: 20050101
  2. TIMOX /00596701/ [Suspect]
     Indication: EPILEPSY
     Dosage: 300 MG / D
     Dates: start: 20050101

REACTIONS (1)
  - ACNE [None]
